FAERS Safety Report 25652076 (Version 2)
Quarter: 2025Q3

REPORT INFORMATION
  Report Type: Spontaneous
  Country: EU (occurrence: EU)
  Receive Date: 20250806
  Receipt Date: 20250828
  Transmission Date: 20251021
  Serious: Yes (Other)
  Sender: JOHNSON AND JOHNSON
  Company Number: EU-JNJFOC-20250802203

PATIENT
  Sex: Male

DRUGS (3)
  1. SPRAVATO [Suspect]
     Active Substance: ESKETAMINE
     Indication: Major depression
     Dosage: FOR SEVERAL WEEKS
     Route: 045
     Dates: start: 20240401
  2. SPRAVATO [Suspect]
     Active Substance: ESKETAMINE
     Dosage: FOR FEW DAYS
     Route: 045
  3. SPRAVATO [Suspect]
     Active Substance: ESKETAMINE
     Dosage: AS MAINTENANCE DOSE
     Route: 045

REACTIONS (2)
  - Suicidal ideation [Unknown]
  - Off label use [Unknown]
